FAERS Safety Report 4350728-7 (Version None)
Quarter: 2004Q2

REPORT INFORMATION
  Report Type: 
  Country: None (occurrence: None)
  Receive Date: 20040429
  Receipt Date: 20040409
  Transmission Date: 20050107
  Serious: Yes (Hospitalization)
  Sender: FDA-Public Use
  Company Number: DSA_24237_2004

PATIENT
  Age: 44 Year
  Sex: Female

DRUGS (3)
  1. DILTIAZEM HCL [Suspect]
     Indication: HYPERTENSION
     Dosage: 300 MG Q DAY PO
     Route: 048
     Dates: start: 20040113, end: 20040126
  2. CARYOLYSINE [Suspect]
     Indication: PSORIASIS
     Dosage: 10 MG 3XWK PO
     Route: 048
     Dates: start: 20040113, end: 20040121
  3. TAHOR [Suspect]
     Dosage: 20 MG Q DAY PO
     Route: 048
     Dates: start: 20040113, end: 20040126

REACTIONS (1)
  - TOXIC EPIDERMAL NECROLYSIS [None]
